FAERS Safety Report 4313555-2 (Version None)
Quarter: 2004Q1

REPORT INFORMATION
  Report Type: 
  Country: None (occurrence: None)
  Receive Date: 20040304
  Receipt Date: 20040212
  Transmission Date: 20041129
  Serious: Yes (Other)
  Sender: FDA-Public Use
  Company Number: US_000541870

PATIENT
  Age: 75 Year
  Sex: Female
  Weight: 57 kg

DRUGS (5)
  1. GEMZAR [Suspect]
     Indication: PANCREATIC CARCINOMA
     Dosage: 1000 MG/WEEK
     Route: 042
     Dates: start: 19990401, end: 20000407
  2. PROCRIT (ERYTHROPOIETIN) [Concomitant]
  3. RADIATION THERAPY [Concomitant]
  4. ASPIRIN [Concomitant]
  5. FOLIC ACID [Concomitant]

REACTIONS (17)
  - ABDOMINAL MASS [None]
  - ANAEMIA [None]
  - ANGIOGRAM ABNORMAL [None]
  - DUODENITIS [None]
  - GASTROINTESTINAL HAEMORRHAGE [None]
  - HEADACHE [None]
  - HYPERTENSION [None]
  - INFLAMMATION [None]
  - MACULAR OEDEMA [None]
  - OPTIC DISC DISORDER [None]
  - RETINAL ARTERY OCCLUSION [None]
  - RETINAL DETACHMENT [None]
  - RETINAL EXUDATES [None]
  - RETINAL HAEMORRHAGE [None]
  - RETINOPATHY [None]
  - SCOTOMA [None]
  - VISION BLURRED [None]
